FAERS Safety Report 10495856 (Version 2)
Quarter: 2014Q4

REPORT INFORMATION
  Report Type: Spontaneous
  Country: FI (occurrence: FI)
  Receive Date: 20141003
  Receipt Date: 20141016
  Transmission Date: 20150528
  Serious: Yes (Death, Other)
  Sender: FDA-Public Use
  Company Number: FI-NAPPMUNDI-GBR-2014-0022287

PATIENT
  Sex: Male

DRUGS (5)
  1. OXYNORM KAPSELI, KOVA [Suspect]
     Active Substance: OXYCODONE HYDROCHLORIDE
     Indication: PRODUCT USED FOR UNKNOWN INDICATION
     Dosage: 0.16 MG/L (1.6 TIMES TREATMENT RANGE)
     Route: 065
     Dates: start: 20110317
  2. METOCLOPRAMIDE. [Suspect]
     Active Substance: METOCLOPRAMIDE
     Indication: PRODUCT USED FOR UNKNOWN INDICATION
     Dosage: 0.3 MG/L, (3 TIMES THE TREATMENT RANGE)
     Route: 065
  3. RESONIUM [Suspect]
     Active Substance: SODIUM POLYSTYRENE SULFONATE
     Indication: PRODUCT USED FOR UNKNOWN INDICATION
     Route: 054
  4. CORTISONE [Suspect]
     Active Substance: CORTISONE\HYDROCORTISONE
     Indication: PRODUCT USED FOR UNKNOWN INDICATION
     Route: 065
  5. OXYNORM KAPSELI, KOVA [Suspect]
     Active Substance: OXYCODONE HYDROCHLORIDE
     Dosage: UNK
     Dates: start: 20140321

REACTIONS (8)
  - Incorrect dose administered [Unknown]
  - Drug hypersensitivity [Fatal]
  - Respiratory depression [Fatal]
  - Drug titration error [Fatal]
  - Drug interaction [Unknown]
  - Asthenia [Unknown]
  - Overdose [Fatal]
  - Incorrect route of drug administration [Unknown]
